FAERS Safety Report 9771048 (Version 1)
Quarter: 2013Q4

REPORT INFORMATION
  Report Type: Spontaneous
  Country: DE (occurrence: DE)
  Receive Date: 20131218
  Receipt Date: 20131218
  Transmission Date: 20140711
  Serious: Yes (Hospitalization)
  Sender: FDA-Public Use
  Company Number: GXKR2013DE003834

PATIENT
  Sex: 0

DRUGS (2)
  1. SERTRALINE [Suspect]
     Indication: DEPRESSION
     Dosage: 100 MG, UNK
     Route: 048
     Dates: start: 201102, end: 201210
  2. SERTRALINE [Suspect]
     Dosage: 50 MG, UNK
     Route: 048
     Dates: start: 201210, end: 201309

REACTIONS (1)
  - Enlarged clitoris [Not Recovered/Not Resolved]
